FAERS Safety Report 11976298 (Version 1)
Quarter: 2016Q1

REPORT INFORMATION
  Report Type: Spontaneous
  Country: FR (occurrence: FR)
  Receive Date: 20160129
  Receipt Date: 20160129
  Transmission Date: 20160526
  Serious: Yes (Hospitalization)
  Sender: FDA-Public Use
  Company Number: FR-FRESENIUS KABI-FK201600422

PATIENT
  Age: 51 Year
  Sex: Female

DRUGS (7)
  1. ZOPHREN [Suspect]
     Active Substance: ONDANSETRON
     Indication: PREMEDICATION
     Route: 042
     Dates: start: 20151016, end: 20151016
  2. METHYLPREDNISOLONE MERCK [Suspect]
     Active Substance: METHYLPREDNISOLONE
     Indication: PREMEDICATION
     Route: 042
     Dates: start: 20151016, end: 20151016
  3. METHYLPREDNISOLONE MERCK [Suspect]
     Active Substance: METHYLPREDNISOLONE
     Route: 040
  4. CARBOPLATIN INJECTION 10MG/ML [Suspect]
     Active Substance: CARBOPLATIN
     Route: 042
  5. GEMCITABINE [Suspect]
     Active Substance: GEMCITABINE\GEMCITABINE HYDROCHLORIDE
     Indication: BREAST CANCER
     Route: 042
     Dates: start: 20151016, end: 20151016
  6. CARBOPLATIN INJECTION 10MG/ML [Suspect]
     Active Substance: CARBOPLATIN
     Indication: BREAST CANCER
     Route: 042
     Dates: start: 20151016, end: 20151016
  7. METHYLPREDNISOLONE MERCK [Suspect]
     Active Substance: METHYLPREDNISOLONE
     Route: 042

REACTIONS (1)
  - Muscle tightness [Recovered/Resolved]

NARRATIVE: CASE EVENT DATE: 20151016
